FAERS Safety Report 9459985 (Version 1)
Quarter: 2013Q3

REPORT INFORMATION
  Report Type: Spontaneous
  Country: US (occurrence: None)
  Receive Date: 20130813
  Receipt Date: 20130813
  Transmission Date: 20140515
  Serious: No
  Sender: FDA-Public Use
  Company Number: None

PATIENT
  Age: 70 Year
  Sex: Female
  Weight: 68.04 kg

DRUGS (1)
  1. SULFAMETHOXAZOLE-TMP DS TAB (SUB FOR BACTRIM DS LAB) [Suspect]
     Indication: MASTITIS
     Route: 048
     Dates: start: 20130726, end: 20130729

REACTIONS (7)
  - Chills [None]
  - Headache [None]
  - Myalgia [None]
  - Arthralgia [None]
  - Fatigue [None]
  - Pyrexia [None]
  - Vision blurred [None]
